FAERS Safety Report 10781304 (Version 1)
Quarter: 2015Q1

REPORT INFORMATION
  Report Type: Spontaneous
  Country: US (occurrence: US)
  Receive Date: 20150210
  Receipt Date: 20150210
  Transmission Date: 20150721
  Serious: No
  Sender: FDA-Public Use
  Company Number: US-GLAXOSMITHKLINE-A1071189A

PATIENT

DRUGS (2)
  1. SIMPLY RIGHT CLEAR 21 MG [Suspect]
     Active Substance: NICOTINE
     Dates: start: 20140421, end: 20140425
  2. SIMPLY RIGHT CLEAR 21 MG [Suspect]
     Active Substance: NICOTINE
     Indication: EX-TOBACCO USER
     Dates: start: 20140421, end: 20140425

REACTIONS (5)
  - Oral discomfort [Recovered/Resolved]
  - Cough [Recovered/Resolved]
  - Sensation of foreign body [Recovered/Resolved]
  - Oropharyngeal discomfort [Recovered/Resolved]
  - Vomiting [Recovered/Resolved]

NARRATIVE: CASE EVENT DATE: 20140422
